FAERS Safety Report 7660104-7 (Version None)
Quarter: 2011Q3

REPORT INFORMATION
  Report Type: 
  Country: None (occurrence: None)
  Receive Date: 20110805
  Receipt Date: 20110725
  Transmission Date: 20111222
  Serious: Yes (Hospitalization)
  Sender: FDA-Public Use
  Company Number: PHHY2011JP57286

PATIENT
  Sex: Female

DRUGS (3)
  1. AFINITOR [Suspect]
     Indication: RENAL CELL CARCINOMA STAGE IV
     Dosage: 5 MG, DAILY
     Route: 048
     Dates: start: 20110107
  2. SORAFENIB TOSILATE [Concomitant]
     Indication: RENAL CELL CARCINOMA STAGE IV
     Dosage: 400 MG, UNK
     Route: 048
     Dates: start: 20091107, end: 20101207
  3. SUNITINIB MALATE [Concomitant]
     Indication: RENAL CELL CARCINOMA STAGE IV
     Dosage: 25 MG, UNK
     Route: 048
     Dates: start: 20101208, end: 20101222

REACTIONS (1)
  - INTERSTITIAL LUNG DISEASE [None]
